FAERS Safety Report 12170302 (Version 1)
Quarter: 2016Q1

REPORT INFORMATION
  Report Type: Other
  Country: US (occurrence: US)
  Receive Date: 20160311
  Receipt Date: 20160311
  Transmission Date: 20160526
  Serious: Yes (Other)
  Sender: FDA-Public Use
  Company Number: US-SHIRE-US201602784

PATIENT
  Age: 91 Year
  Sex: Female

DRUGS (1)
  1. VYVANSE [Suspect]
     Active Substance: LISDEXAMFETAMINE DIMESYLATE
     Indication: PRODUCT USED FOR UNKNOWN INDICATION
     Dosage: UNK, UNKNOWN
     Route: 048
     Dates: end: 201601

REACTIONS (6)
  - Disturbance in attention [Unknown]
  - Drug withdrawal syndrome [Unknown]
  - Apathy [Unknown]
  - Confusional state [Unknown]
  - Asthenia [Unknown]
  - Anxiety [Unknown]

NARRATIVE: CASE EVENT DATE: 201601
